FAERS Safety Report 8872306 (Version 1)
Quarter: 2012Q4

REPORT INFORMATION
  Report Type: 
  Country: US (occurrence: US)
  Receive Date: 20121026
  Receipt Date: 20121026
  Transmission Date: 20130627
  Serious: No
  Sender: FDA-Public Use
  Company Number: US-AMGEN-USASP2012049267

PATIENT
  Age: 61 Year
  Sex: Female
  Weight: 74.83 kg

DRUGS (12)
  1. ENBREL [Suspect]
     Indication: PRODUCT USED FOR UNKNOWN INDICATION
     Dosage: 50 mg, qwk
     Route: 058
  2. PROAIR HFA [Concomitant]
     Dosage: UNK
  3. SPIRIVA HANDIHALER [Concomitant]
     Dosage: UNK
  4. VICODIN [Concomitant]
     Dosage: 5-500 MG
  5. METHOTREXATE /00113802/ [Concomitant]
     Dosage: 2.5 mg, UNK
  6. INDOCIN                            /00003801/ [Concomitant]
     Dosage: 50 mg, UNK
  7. FOLIC ACID [Concomitant]
     Dosage: UNK
  8. PLAQUENIL                          /00072602/ [Concomitant]
     Dosage: 200 mg, UNK
  9. LANSOPRAZOLE ACTAVIS [Concomitant]
     Dosage: 15 mg, UNK
  10. CALCIUM [Concomitant]
     Dosage: 500 UNK, UNK
  11. VITAMIN C                          /00008001/ [Concomitant]
     Dosage: 500 mg, UNK
  12. GABAPENTIN [Concomitant]
     Dosage: 100 mg, UNK

REACTIONS (1)
  - Sinusitis [Unknown]
